FAERS Safety Report 20688938 (Version 3)
Quarter: 2022Q2

REPORT INFORMATION
  Report Type: Spontaneous
  Country: AE (occurrence: AE)
  Receive Date: 20220408
  Receipt Date: 20220426
  Transmission Date: 20220721
  Serious: Yes (Hospitalization, Other)
  Sender: FDA-Public Use
  Company Number: AE-PFIZER INC-202200466736

PATIENT
  Age: 31 Year
  Sex: Male
  Weight: 72 kg

DRUGS (1)
  1. ENBREL [Suspect]
     Active Substance: ETANERCEPT
     Indication: Ankylosing spondylitis
     Dosage: 50 MILLIGRAM, QWK
     Route: 058
     Dates: start: 20170801

REACTIONS (1)
  - Arthroscopic surgery [Recovered/Resolved]

NARRATIVE: CASE EVENT DATE: 20220323
